FAERS Safety Report 7048648-2 (Version None)
Quarter: 2010Q4

REPORT INFORMATION
  Report Type: 
  Country: None (occurrence: None)
  Receive Date: 20101018
  Receipt Date: 20101001
  Transmission Date: 20110411
  Serious: Yes (Other)
  Sender: FDA-Public Use
  Company Number: US-BAYER-201030997NA

PATIENT
  Age: 51 Year
  Sex: Female

DRUGS (5)
  1. BETASERON [Suspect]
     Indication: SECONDARY PROGRESSIVE MULTIPLE SCLEROSIS
     Dosage: TOTAL DAILY DOSE: 8 MIU
     Route: 058
     Dates: end: 20100830
  2. BETASERON [Suspect]
     Dosage: TOTAL DAILY DOSE: 6 MIU
     Route: 058
  3. BETASERON [Suspect]
     Dosage: TOTAL DAILY DOSE: 4 MIU
     Route: 058
     Dates: start: 20100414
  4. BETASERON [Suspect]
     Dosage: TOTAL DAILY DOSE: 4 MIU
     Route: 058
  5. METOPROLOL [Concomitant]

REACTIONS (11)
  - ATRIOVENTRICULAR BLOCK FIRST DEGREE [None]
  - CARDIAC HYPERTROPHY [None]
  - DYSPNOEA [None]
  - HEART VALVE INCOMPETENCE [None]
  - INJECTION SITE HAEMATOMA [None]
  - NAUSEA [None]
  - NON-CARDIAC CHEST PAIN [None]
  - PALPITATIONS [None]
  - SWELLING [None]
  - VENTRICULAR EXTRASYSTOLES [None]
  - VOMITING [None]
